FAERS Safety Report 10056181 (Version 1)
Quarter: 2014Q2

REPORT INFORMATION
  Report Type: Report from Study
  Country: AR (occurrence: AR)
  Receive Date: 20140403
  Receipt Date: 20140403
  Transmission Date: 20141212
  Serious: Yes (Other)
  Sender: FDA-Public Use
  Company Number: PHHY2014AR039886

PATIENT
  Sex: Male

DRUGS (1)
  1. EXFORGE [Suspect]
     Indication: BLOOD PRESSURE ABNORMAL
     Dosage: 1 DF (160/10MG), DAILY
     Route: 048
     Dates: end: 201309

REACTIONS (2)
  - Arterial thrombosis [Recovered/Resolved]
  - Oedema peripheral [Recovered/Resolved]
